FAERS Safety Report 4972851-6 (Version None)
Quarter: 2006Q2

REPORT INFORMATION
  Report Type: 
  Country: None (occurrence: None)
  Receive Date: 20060410
  Receipt Date: 20060327
  Transmission Date: 20061013
  Serious: Yes (Hospitalization, Other)
  Sender: FDA-Public Use
  Company Number: 2004243609US

PATIENT
  Age: 38 Year
  Sex: Female
  Weight: 72.56 kg

DRUGS (10)
  1. BEXTRA [Suspect]
     Indication: ARTHRITIS
     Dosage: 20 MG (10 MG, 2 IN 1 D); ORAL
     Route: 048
     Dates: start: 20041001, end: 20041001
  2. CELEBREX [Suspect]
     Indication: ARTHRITIS
     Dosage: 400 MG (200 MG, 2 IN 1 D); ORAL
     Route: 048
     Dates: start: 20041001
  3. NYSTATIN [Concomitant]
  4. ADDERALL 10 [Concomitant]
  5. ACTONEL [Concomitant]
  6. ATIVAN [Concomitant]
  7. ASTELIN [Concomitant]
  8. ALEVE [Concomitant]
  9. ALL OTHER THERAPEUTIC PRODUCTS [Concomitant]
  10. CALCIUM GLUCONATE [Concomitant]

REACTIONS (3)
  - GASTROOESOPHAGEAL REFLUX DISEASE [None]
  - INTERVERTEBRAL DISC PROTRUSION [None]
  - KIDNEY INFECTION [None]
